FAERS Safety Report 4405051-9 (Version None)
Quarter: 2004Q3

REPORT INFORMATION
  Report Type: 
  Country: None (occurrence: None)
  Receive Date: 20040715
  Receipt Date: 20040629
  Transmission Date: 20050211
  Serious: Yes (Death)
  Sender: FDA-Public Use
  Company Number: US-JNJFOC-20040702258

PATIENT
  Age: 69 Year
  Sex: Female

DRUGS (4)
  1. LEVOFLOXACIN (LOVOFLOXACIN)UNSPECIFIED [Suspect]
     Dosage: 500 MG, 1 IN 1 DAY
     Dates: start: 20000705, end: 20000706
  2. AMIODARONE HCL (AMIODARONE HYDROCHLORIDE) [Suspect]
     Dosage: 200 MG, 1 IN 1 DAY
  3. FLAGIL (METRONIDAZOLE) [Concomitant]
  4. PRILOSEC (0MEPRAZOLE) [Concomitant]

REACTIONS (4)
  - ELECTROCARDIOGRAM QT PROLONGED [None]
  - TORSADE DE POINTES [None]
  - VENTRICULAR FIBRILLATION [None]
  - VENTRICULAR TACHYCARDIA [None]
